FAERS Safety Report 8776846 (Version 2)
Quarter: 2012Q4

REPORT INFORMATION
  Report Type: 
  Country: US (occurrence: US)
  Receive Date: 20120911
  Receipt Date: 20120911
  Transmission Date: 20130627
  Serious: Yes (Hospitalization, Other)
  Sender: FDA-Public Use
  Company Number: US-PFIZER INC-2012114766

PATIENT
  Age: 33 Year
  Sex: Male
  Weight: 70.3 kg

DRUGS (23)
  1. CHANTIX [Suspect]
     Indication: SMOKING CESSATION THERAPY
     Dosage: 1 mg, 2x/day
  2. NEURONTIN [Suspect]
     Indication: ANXIETY
     Dosage: 400 mg, 4x/day
  3. NEURONTIN [Suspect]
     Indication: NERVE INJURY
  4. VIAGRA [Suspect]
     Indication: ERECTILE DYSFUNCTION
     Dosage: 100 mg, as needed
  5. NICOTROL [Suspect]
     Indication: SMOKING CESSATION THERAPY
     Dosage: UNK
     Route: 055
  6. WELLBUTRIN [Suspect]
     Dosage: UNK
  7. TESTOSTERONE [Concomitant]
     Dosage: 400 mg, daily
  8. SAIZEN [Concomitant]
     Dosage: 8.8 mg, 2x/day
  9. CARDIZEM [Concomitant]
     Dosage: 60 mg, daily
  10. COREG [Concomitant]
     Dosage: 3.125 mg, 2x/day
  11. LOVAZA [Concomitant]
     Dosage: 4 g, daily
  12. COUMADIN [Concomitant]
     Dosage: 10 mg, 2x/day
  13. PROAIR HFA [Concomitant]
     Dosage: UNK, as needed
  14. CRESTOR [Concomitant]
     Dosage: 10 mg, 2x/day
  15. MARINOL [Concomitant]
     Dosage: 10 mg, 2x/day
  16. LOPRESSOR [Concomitant]
     Dosage: 25 mg, 2x/day
  17. PROTONIX [Concomitant]
     Dosage: 40 mg, daily
  18. PLAVIX [Concomitant]
     Dosage: 75 mg, daily
  19. CYMBALTA [Concomitant]
     Dosage: 30 mg, 2x/day
  20. EFFEXOR [Concomitant]
     Dosage: 75 mg, 3x/day
  21. NITROGLYCERIN [Concomitant]
     Indication: CHEST PAIN
     Dosage: UNK, as needed
  22. CLONIDINE [Concomitant]
     Dosage: 0.3 mg, 3x/day
  23. BYSTOLIC [Concomitant]
     Dosage: UNK

REACTIONS (8)
  - Cardiac failure [Unknown]
  - Cardiovascular disorder [Unknown]
  - Thrombosis [Unknown]
  - Pulmonary oedema [Unknown]
  - Lung neoplasm malignant [Unknown]
  - Renal failure [Unknown]
  - Anaemia [Unknown]
  - Drug ineffective [Unknown]
